FAERS Safety Report 6215631-6 (Version None)
Quarter: 2009Q2

REPORT INFORMATION
  Report Type: 
  Country: None (occurrence: None)
  Receive Date: 20090603
  Receipt Date: 20090603
  Transmission Date: 20091009
  Serious: Yes (Life-Threatening, Hospitalization, Other)
  Sender: FDA-Public Use
  Company Number: None

PATIENT
  Age: 61 Year
  Sex: Female

DRUGS (4)
  1. PROPOFOL [Suspect]
  2. VERSED [Suspect]
  3. FENTANYL [Suspect]
  4. PARALYTICS [Suspect]

REACTIONS (7)
  - CHOLINERGIC SYNDROME [None]
  - DELIRIUM [None]
  - FLUSHING [None]
  - MUSCLE RIGIDITY [None]
  - OXYGEN SATURATION DECREASED [None]
  - PUPILLARY DISORDER [None]
  - TARDIVE DYSKINESIA [None]
